FAERS Safety Report 23621083 (Version 1)
Quarter: 2024Q1

REPORT INFORMATION
  Report Type: Report from Study
  Country: DE (occurrence: DE)
  Receive Date: 20240312
  Receipt Date: 20240312
  Transmission Date: 20240409
  Serious: Yes (Congenital Anomaly, Other)
  Sender: FDA-Public Use
  Company Number: DE-002147023-NVSC2023DE139356

PATIENT

DRUGS (1)
  1. FINGOLIMOD [Suspect]
     Active Substance: FINGOLIMOD
     Indication: Product used for unknown indication
     Dosage: MATERNAL DOSE AT EXPOSURE: UNK
     Route: 064

REACTIONS (3)
  - Heart disease congenital [Unknown]
  - Microcephaly [Unknown]
  - Foetal exposure during pregnancy [Unknown]
